FAERS Safety Report 7387285-7 (Version None)
Quarter: 2011Q1

REPORT INFORMATION
  Report Type: 
  Country: None (occurrence: None)
  Receive Date: 20110331
  Receipt Date: 20110322
  Transmission Date: 20110831
  Serious: Yes (Disabling)
  Sender: FDA-Public Use
  Company Number: AU-ASTRAZENECA-2011SE16162

PATIENT
  Age: 21323 Day
  Sex: Female
  Weight: 100 kg

DRUGS (1)
  1. CRESTOR [Suspect]
     Route: 048
     Dates: start: 20100712, end: 20100912

REACTIONS (8)
  - ABDOMINAL DISCOMFORT [None]
  - FATIGUE [None]
  - WHEEZING [None]
  - MYALGIA [None]
  - ARTHRALGIA [None]
  - NAUSEA [None]
  - DIARRHOEA [None]
  - DYSPNOEA [None]
